FAERS Safety Report 7381759-0 (Version None)
Quarter: 2011Q1

REPORT INFORMATION
  Report Type: 
  Country: None (occurrence: None)
  Receive Date: 20110329
  Receipt Date: 20101014
  Transmission Date: 20110831
  Serious: Yes (Hospitalization)
  Sender: FDA-Public Use
  Company Number: US-BAYER-200938747NA

PATIENT
  Sex: Female
  Weight: 70.295 kg

DRUGS (3)
  1. CAMILA [Concomitant]
     Dosage: UNK
  2. YAZ [Suspect]
     Indication: CONTRACEPTION
     Dosage: UNK
     Route: 048
     Dates: start: 20081101, end: 20090801
  3. YASMIN [Suspect]
     Indication: CONTRACEPTION
     Dosage: UNK
     Route: 048
     Dates: start: 20081101, end: 20090101

REACTIONS (1)
  - CEREBROVASCULAR ACCIDENT [None]
